FAERS Safety Report 9885899 (Version 1)
Quarter: 2014Q1

REPORT INFORMATION
  Report Type: Spontaneous
  Country: NL (occurrence: NL)
  Receive Date: 20140210
  Receipt Date: 20140210
  Transmission Date: 20141002
  Serious: Yes (Hospitalization, Other)
  Sender: FDA-Public Use
  Company Number: NL-AMGEN-NLDSP2014008793

PATIENT
  Age: 67 Year
  Sex: Female
  Weight: 71 kg

DRUGS (5)
  1. NEULASTA [Suspect]
     Indication: PROPHYLAXIS
     Dosage: 6 MG, 1 TIMES PER 1 DAYS
     Route: 065
     Dates: start: 20140109, end: 20140110
  2. PARACETAMOL [Concomitant]
     Dosage: 1000 MG, TID
  3. DEXAMETHASONE [Concomitant]
     Dosage: 4 MG, BID
     Dates: start: 20140109, end: 20140110
  4. ONDANSETRON [Concomitant]
     Dosage: 8 MG, TID
     Dates: start: 20140109, end: 20140110
  5. DOCETAXEL [Concomitant]
     Dosage: 170 MG, QD
     Dates: start: 20140109, end: 20140110

REACTIONS (1)
  - Interstitial lung disease [Recovering/Resolving]
